FAERS Safety Report 20344151 (Version 1)
Quarter: 2022Q1

REPORT INFORMATION
  Report Type: Spontaneous
  Country: FR (occurrence: FR)
  Receive Date: 20220118
  Receipt Date: 20220118
  Transmission Date: 20220424
  Serious: Yes (Other)
  Sender: FDA-Public Use
  Company Number: FR-CELGENE-FRA-20220102859

PATIENT
  Age: 58 Year
  Sex: Female

DRUGS (11)
  1. THALIDOMIDE [Suspect]
     Active Substance: THALIDOMIDE
     Indication: Product used for unknown indication
     Route: 048
  2. THALIDOMIDE [Suspect]
     Active Substance: THALIDOMIDE
     Indication: Cachexia
     Route: 048
  3. THALIDOMIDE [Suspect]
     Active Substance: THALIDOMIDE
     Indication: Plasma cell myeloma
  4. THALIDOMIDE [Suspect]
     Active Substance: THALIDOMIDE
     Indication: Myelodysplastic syndrome
  5. THALIDOMIDE [Suspect]
     Active Substance: THALIDOMIDE
     Indication: Colorectal cancer
  6. THALIDOMIDE [Suspect]
     Active Substance: THALIDOMIDE
     Indication: Renal cell carcinoma
  7. THALIDOMIDE [Suspect]
     Active Substance: THALIDOMIDE
     Indication: Prostate cancer
  8. THALIDOMIDE [Suspect]
     Active Substance: THALIDOMIDE
     Indication: Myelodysplastic syndrome
  9. HYDROXYCHLOROQUINE [Concomitant]
     Active Substance: HYDROXYCHLOROQUINE
     Indication: Product used for unknown indication
     Dosage: 600 MILLIGRAM
     Route: 065
  10. DOXYCYCLINE [Concomitant]
     Active Substance: DOXYCYCLINE
     Indication: Product used for unknown indication
     Dosage: 200 MILLIGRAM
     Route: 065
  11. PREDNISOLONE [Concomitant]
     Active Substance: PREDNISOLONE
     Indication: Product used for unknown indication
     Dosage: 30 MILLIGRAM
     Route: 065

REACTIONS (3)
  - Whipple^s disease [Unknown]
  - Immune reconstitution inflammatory syndrome [Unknown]
  - Type IV hypersensitivity reaction [Unknown]

NARRATIVE: CASE EVENT DATE: 20200101
